FAERS Safety Report 4839259-5 (Version None)
Quarter: 2005Q4

REPORT INFORMATION
  Report Type: 
  Country: None (occurrence: None)
  Receive Date: 20051129
  Receipt Date: 20041022
  Transmission Date: 20060501
  Serious: No
  Sender: FDA-Public Use
  Company Number: US-GLAXOSMITHKLINE-A0530914A

PATIENT
  Age: 46 Year
  Sex: Female

DRUGS (5)
  1. WELLBUTRIN SR [Suspect]
     Indication: DEPRESSION
     Dosage: 450MG PER DAY
     Route: 048
     Dates: start: 20040907
  2. SYNTHROID [Concomitant]
  3. LEXAPRO [Concomitant]
  4. LORATADINE [Concomitant]
  5. SINGULAIR [Concomitant]

REACTIONS (3)
  - FACIAL PAIN [None]
  - FEELING JITTERY [None]
  - SOMNOLENCE [None]
